FAERS Safety Report 12678529 (Version 4)
Quarter: 2018Q4

REPORT INFORMATION
  Report Type: Report from Study
  Country: CA (occurrence: CA)
  Receive Date: 20160823
  Receipt Date: 20181113
  Transmission Date: 20190204
  Serious: Yes (Other)
  Sender: FDA-Public Use
  Company Number: PHHY2016CA115075

PATIENT
  Age: 66 Year
  Sex: Male

DRUGS (5)
  1. SINGULAIR [Suspect]
     Active Substance: MONTELUKAST SODIUM
     Indication: PRODUCT USED FOR UNKNOWN INDICATION
     Route: 065
  2. METOPROLOL. [Suspect]
     Active Substance: METOPROLOL
     Dosage: 37 MG, BID (DOSE DECREASE FROM 100 MG TO 75 MG)
     Route: 058
  3. XOLAIR [Suspect]
     Active Substance: OMALIZUMAB
     Indication: ASTHMA
     Dosage: 150 MG, EVERY 4 WEEKS
     Route: 058
     Dates: start: 20140319
  4. XOLAIR [Suspect]
     Active Substance: OMALIZUMAB
     Dosage: UNK
     Route: 058
     Dates: start: 2017
  5. METOPROLOL. [Suspect]
     Active Substance: METOPROLOL
     Indication: ATRIAL FIBRILLATION
     Dosage: 50 MG, BID
     Route: 065
     Dates: start: 2016

REACTIONS (10)
  - Atrial fibrillation [Unknown]
  - Hypopnoea [Recovering/Resolving]
  - Dyspnoea [Unknown]
  - Middle insomnia [Unknown]
  - Obstructive airways disorder [Unknown]
  - Forced expiratory volume decreased [Not Recovered/Not Resolved]
  - Tremor [Unknown]
  - Insomnia [Recovered/Resolved]
  - Prolonged expiration [Unknown]
  - Asthma [Unknown]

NARRATIVE: CASE EVENT DATE: 20160802
